FAERS Safety Report 18560257 (Version 3)
Quarter: 2020Q4

REPORT INFORMATION
  Report Type: Spontaneous
  Country: US (occurrence: US)
  Receive Date: 20201130
  Receipt Date: 20201203
  Transmission Date: 20210114
  Serious: Yes (Hospitalization, Other)
  Sender: FDA-Public Use
  Company Number: US-PFIZER INC-2020465061

PATIENT
  Age: 83 Year
  Sex: Male
  Weight: 78.91 kg

DRUGS (1)
  1. VYNDAMAX [Suspect]
     Active Substance: TAFAMIDIS
     Indication: CARDIAC AMYLOIDOSIS
     Dosage: 61 MG, 1X/DAY
     Route: 048

REACTIONS (11)
  - Anosmia [Unknown]
  - Asthenia [Recovered/Resolved]
  - Feeding disorder [Unknown]
  - Taste disorder [Unknown]
  - Renal disorder [Unknown]
  - Fatigue [Unknown]
  - Decreased appetite [Unknown]
  - Dehydration [Unknown]
  - Depressed mood [Unknown]
  - Ageusia [Unknown]
  - Cardiac disorder [Unknown]

NARRATIVE: CASE EVENT DATE: 20201117
